FAERS Safety Report 8079339-7 (Version None)
Quarter: 2012Q1

REPORT INFORMATION
  Report Type: 
  Country: None (occurrence: None)
  Receive Date: 20120128
  Receipt Date: 20110821
  Transmission Date: 20120608
  Serious: No
  Sender: FDA-Public Use
  Company Number: US-ABBOTT-11P-163-0848389-00

PATIENT
  Age: 44 Year
  Sex: Female

DRUGS (5)
  1. VALIUM [Concomitant]
     Indication: PRODUCT USED FOR UNKNOWN INDICATION
     Dosage: 1 Q 6 HRS PRN
  2. PRILOSEC [Concomitant]
     Indication: GASTROOESOPHAGEAL REFLUX DISEASE
  3. HUMIRA [Suspect]
     Indication: CROHN'S DISEASE
     Dates: start: 20110525, end: 20110622
  4. TRICOR [Concomitant]
     Indication: BLOOD CHOLESTEROL
  5. VICODIN [Concomitant]
     Indication: PAIN
     Dosage: 5/500 MG PRN

REACTIONS (4)
  - PRODUCTIVE COUGH [None]
  - BACK INJURY [None]
  - SINUSITIS [None]
  - PYREXIA [None]
